FAERS Safety Report 5202805-6 (Version None)
Quarter: 2007Q1

REPORT INFORMATION
  Report Type: 
  Country: None (occurrence: None)
  Receive Date: 20070109
  Receipt Date: 20061228
  Transmission Date: 20070707
  Serious: Yes (Hospitalization)
  Sender: FDA-Public Use
  Company Number: SE-PFIZER INC-2007001744

PATIENT
  Age: 43 Year
  Sex: Male

DRUGS (4)
  1. PREDNISOLONE [Suspect]
     Indication: THROMBOCYTOPENIA
     Route: 048
  2. IVEEGAM [Suspect]
     Indication: THROMBOCYTOPENIA
     Route: 042
     Dates: start: 20051101, end: 20051104
  3. CALCICHEW-D3 [Concomitant]
  4. FOSAMAX [Concomitant]

REACTIONS (1)
  - PULMONARY EMBOLISM [None]
